FAERS Safety Report 25213953 (Version 1)
Quarter: 2025Q2

REPORT INFORMATION
  Report Type: Spontaneous
  Country: CN (occurrence: CN)
  Receive Date: 20250418
  Receipt Date: 20250418
  Transmission Date: 20250717
  Serious: Yes (Other)
  Sender: AMGEN
  Company Number: CN-SERVIER-S25004680

PATIENT

DRUGS (1)
  1. IVABRADINE [Suspect]
     Active Substance: IVABRADINE
     Indication: Acute myocardial infarction
     Dosage: 5 MG, QD
     Route: 048

REACTIONS (6)
  - Hypokalaemia [Unknown]
  - Tachycardia [Unknown]
  - Constipation [Unknown]
  - Product use issue [Recovered/Resolved]
  - Product use issue [Recovered/Resolved]
  - Drug ineffective [Recovered/Resolved]
